FAERS Safety Report 7677399-6 (Version None)
Quarter: 2011Q3

REPORT INFORMATION
  Report Type: 
  Country: None (occurrence: None)
  Receive Date: 20110811
  Receipt Date: 20110808
  Transmission Date: 20111222
  Serious: Yes (Other)
  Sender: FDA-Public Use
  Company Number: DE-CEPHALON-US018773

PATIENT
  Sex: Male
  Weight: 121 kg

DRUGS (5)
  1. FUROSEMIDE [Concomitant]
     Route: 065
  2. MODAFINIL [Suspect]
     Indication: SLEEP APNOEA SYNDROME
     Route: 048
     Dates: start: 20060221, end: 20060223
  3. ASPIRIN [Concomitant]
     Route: 065
  4. BELOK ZOK [Concomitant]
     Dosage: 1 IN AM, 1 IN PM
     Route: 065
  5. VALPROATE SODIUM [Concomitant]
     Dosage: 3 X 1000MG
     Route: 065

REACTIONS (1)
  - EPILEPSY [None]
